FAERS Safety Report 8609519-0 (Version None)
Quarter: 2012Q3

REPORT INFORMATION
  Report Type: 
  Country: None (occurrence: None)
  Receive Date: 20120821
  Receipt Date: 20120814
  Transmission Date: 20120928
  Serious: Yes (Hospitalization, Other)
  Sender: FDA-Public Use
  Company Number: FR-PFIZER INC-2011277757

PATIENT
  Age: 3 Year
  Sex: Male
  Weight: 5.8 kg

DRUGS (4)
  1. UVESTEROL [Concomitant]
  2. PEDIATRIC ADVIL [Suspect]
     Indication: CELLULITIS
     Dosage: UNK
  3. ACETAMINOPHEN [Suspect]
     Indication: PYREXIA
  4. VITAMIN K TAB [Concomitant]

REACTIONS (3)
  - CELLULITIS [None]
  - HYPERSENSITIVITY [None]
  - URTICARIA [None]
